FAERS Safety Report 10340080 (Version 1)
Quarter: 2014Q3

REPORT INFORMATION
  Report Type: Spontaneous
  Country: RU (occurrence: RU)
  Receive Date: 20140724
  Receipt Date: 20140724
  Transmission Date: 20150326
  Serious: Yes (Life-Threatening, Hospitalization)
  Sender: FDA-Public Use
  Company Number: RU-TEVA-496645ISR

PATIENT
  Age: 69 Year
  Sex: Female

DRUGS (2)
  1. METIPRED [Suspect]
     Active Substance: METHYLPREDNISOLONE
     Route: 048
  2. EUTHYROX [Concomitant]
     Active Substance: LEVOTHYROXINE SODIUM

REACTIONS (2)
  - Peritonitis [Recovered/Resolved]
  - Intestinal ulcer perforation [Recovered/Resolved]
